FAERS Safety Report 24361114 (Version 1)
Quarter: 2024Q3

REPORT INFORMATION
  Report Type: Spontaneous
  Country: US (occurrence: US)
  Receive Date: 20240925
  Receipt Date: 20240925
  Transmission Date: 20241017
  Serious: Yes (Other)
  Sender: ABBVIE
  Company Number: US-ABBVIE-5933631

PATIENT
  Age: 49 Year
  Sex: Female
  Weight: 62 kg

DRUGS (9)
  1. SYNTHROID [Suspect]
     Active Substance: LEVOTHYROXINE SODIUM
     Indication: Uterine leiomyoma
     Route: 048
     Dates: start: 202309
  2. FOLIC ACID [Concomitant]
     Active Substance: FOLIC ACID
     Indication: Product used for unknown indication
  3. VITAMIN D NOS [Concomitant]
     Active Substance: CHOLECALCIFEROL\ERGOCALCIFEROL
     Indication: Vitamin supplementation
     Dosage: DOSE: 1
     Route: 048
     Dates: start: 202307
  4. MAGNESIUM [Concomitant]
     Active Substance: MAGNESIUM
     Indication: Mineral supplementation
     Dosage: DOSE: 1
     Route: 048
     Dates: start: 202307
  5. IRON [Concomitant]
     Active Substance: IRON
     Indication: Mineral supplementation
     Dosage: DOSE: 1
     Route: 048
     Dates: start: 202307
  6. VITAMIN B6 [Concomitant]
     Active Substance: PYRIDOXINE HYDROCHLORIDE
     Indication: Nausea
  7. ASPIRIN [Concomitant]
     Active Substance: ASPIRIN
     Indication: Prophylaxis
     Route: 048
     Dates: start: 202409
  8. METOPROLOL TARTRATE [Concomitant]
     Active Substance: METOPROLOL TARTRATE
     Indication: Hypertension
     Dosage: TIME INTERVAL: AS NECESSARY
     Route: 048
     Dates: start: 20240502
  9. UNISOM SLEEPTABS [Concomitant]
     Active Substance: DOXYLAMINE SUCCINATE
     Indication: Nausea

REACTIONS (7)
  - Foetal growth restriction [Not Recovered/Not Resolved]
  - Fibroadenoma of breast [Not Recovered/Not Resolved]
  - Heart rate increased [Not Recovered/Not Resolved]
  - Postural orthostatic tachycardia syndrome [Recovered/Resolved]
  - Maternal exposure during pregnancy [Unknown]
  - Hypothyroidism [Not Recovered/Not Resolved]
  - Live birth [Unknown]

NARRATIVE: CASE EVENT DATE: 20231212
